FAERS Safety Report 7996930-4 (Version None)
Quarter: 2011Q4

REPORT INFORMATION
  Report Type: 
  Country: None (occurrence: None)
  Receive Date: 20111221
  Receipt Date: 20111211
  Transmission Date: 20120403
  Serious: Yes (Death)
  Sender: FDA-Public Use
  Company Number: EG-SANOFI-AVENTIS-2011SA081114

PATIENT
  Age: 61 Year
  Sex: Female

DRUGS (2)
  1. INSULIN HUMAN [Concomitant]
     Indication: TYPE 2 DIABETES MELLITUS
     Route: 058
     Dates: end: 20111011
  2. LANTUS [Suspect]
     Indication: TYPE 2 DIABETES MELLITUS
     Dosage: DOSE:10 UNIT(S)
     Route: 058
     Dates: start: 20110913, end: 20111011

REACTIONS (1)
  - DEATH [None]
